FAERS Safety Report 13940334 (Version 1)
Quarter: 2017Q3

REPORT INFORMATION
  Report Type: Spontaneous
  Country: NL (occurrence: NL)
  Receive Date: 20170906
  Receipt Date: 20170906
  Transmission Date: 20171127
  Serious: Yes (Death, Hospitalization, Other)
  Sender: FDA-Public Use
  Company Number: NL-IPSEN BIOPHARMACEUTICALS, INC.-2017-10170

PATIENT
  Age: 66 Year
  Sex: Male

DRUGS (18)
  1. DOXAZOSINE [Concomitant]
     Active Substance: DOXAZOSIN MESYLATE
     Indication: HYPERTENSION
     Route: 048
  2. INSULINE ASPART [Concomitant]
     Indication: DIABETES MELLITUS
     Route: 058
  3. ALLOPURINOL. [Concomitant]
     Active Substance: ALLOPURINOL
     Indication: GOUT
     Route: 048
  4. NIFEDIPINE. [Concomitant]
     Active Substance: NIFEDIPINE
     Indication: HYPERTENSION
     Route: 048
     Dates: start: 20150701
  5. FLUTICASON [Concomitant]
     Active Substance: FLUTICASONE
     Indication: RHINITIS PROPHYLAXIS
     Route: 045
  6. LISINOPRIL. [Concomitant]
     Active Substance: LISINOPRIL
     Indication: HYPERTENSION
     Route: 048
  7. INSULINE GLARGINE [Concomitant]
     Active Substance: INSULIN GLARGINE
     Indication: DIABETES MELLITUS
     Route: 058
  8. ACETAMINOPHEN AND CODEINE [Concomitant]
     Active Substance: ACETAMINOPHEN\CODEINE PHOSPHATE
     Indication: HEADACHE
     Route: 048
     Dates: start: 201605
  9. CARBAMAZEPINE. [Concomitant]
     Active Substance: CARBAMAZEPINE
     Indication: LUMBOSACRAL PLEXUS INJURY
     Route: 048
     Dates: start: 20161115
  10. COLECALCIFEROL [Concomitant]
     Active Substance: CHOLECALCIFEROL
     Indication: VITAMIN D DEFICIENCY
     Route: 048
     Dates: start: 20160701
  11. LANREOTIDE [Suspect]
     Active Substance: LANREOTIDE
     Indication: CARCINOID SYNDROME
     Dosage: 120 MG
     Route: 058
     Dates: start: 20151221
  12. MULTIVITAMIN [Concomitant]
     Active Substance: VITAMINS
     Indication: HYPOKALAEMIA
     Route: 048
     Dates: start: 20170418
  13. LX1606 [Concomitant]
     Indication: CARCINOID SYNDROME
     Route: 048
     Dates: start: 20160223, end: 20170601
  14. THIAMINE. [Concomitant]
     Active Substance: THIAMINE
     Indication: VITAMIN D DEFICIENCY
     Route: 048
     Dates: start: 20170418
  15. LX1606 [Concomitant]
     Route: 048
     Dates: start: 20170711, end: 20170824
  16. CARBASALAAT CALCIUM [Concomitant]
     Indication: LATERAL MEDULLARY SYNDROME
     Route: 048
  17. OMEPRAZOLE. [Concomitant]
     Active Substance: OMEPRAZOLE
     Indication: GASTROOESOPHAGEAL REFLUX PROPHYLAXIS
     Route: 048
  18. OXYCODON [Concomitant]
     Active Substance: OXYCODONE
     Indication: BACK PAIN
     Route: 048
     Dates: start: 20160517

REACTIONS (7)
  - Bone pain [Unknown]
  - General physical health deterioration [Unknown]
  - Infection [Unknown]
  - Loss of consciousness [Unknown]
  - Disease progression [Fatal]
  - Performance status decreased [Unknown]
  - Headache [Unknown]

NARRATIVE: CASE EVENT DATE: 20170824
